FAERS Safety Report 7586923-3 (Version None)
Quarter: 2011Q3

REPORT INFORMATION
  Report Type: 
  Country: None (occurrence: None)
  Receive Date: 20110701
  Receipt Date: 20110629
  Transmission Date: 20111222
  Serious: Yes (Other)
  Sender: FDA-Public Use
  Company Number: FR-GILEAD-2011-0040419

PATIENT
  Sex: Male
  Weight: 66 kg

DRUGS (7)
  1. PREZISTA [Concomitant]
     Indication: HIV INFECTION
     Dates: start: 20110329, end: 20110531
  2. HEPATONIC [Concomitant]
     Indication: NAUSEA
     Dates: start: 20110524, end: 20110531
  3. TRUVADA [Suspect]
     Indication: HIV INFECTION
     Dates: start: 20110329, end: 20110531
  4. BI-O [Concomitant]
     Indication: NAUSEA
     Dates: start: 20110519
  5. OMEPRAZOLE [Concomitant]
     Indication: NAUSEA
     Dates: end: 20110531
  6. NORVIR [Concomitant]
     Indication: HIV INFECTION
     Dates: start: 20110329, end: 20110531
  7. DIMENHYDRINATE [Concomitant]
     Indication: NAUSEA
     Dates: start: 20110523, end: 20110524

REACTIONS (1)
  - HEPATITIS C [None]
